FAERS Safety Report 9420429 (Version 1)
Quarter: 2013Q3

REPORT INFORMATION
  Report Type: Spontaneous
  Country: US (occurrence: US)
  Receive Date: 20130725
  Receipt Date: 20130725
  Transmission Date: 20140515
  Serious: No
  Sender: FDA-Public Use
  Company Number: US-ABBOTT-13P-163-1059256-00

PATIENT
  Age: 42 Year
  Sex: Female

DRUGS (2)
  1. SYNTHROID 112 MCG [Suspect]
     Indication: HYPOTHYROIDISM
     Dosage: SIX DAYS PER WEEK, MON-SAT
     Route: 048
  2. SYNTHROID 25 MCG [Suspect]
     Indication: HYPOTHYROIDISM
     Dosage: WEEKLY ON SUN
     Route: 048

REACTIONS (1)
  - Hypoglycaemia [Recovered/Resolved]
